FAERS Safety Report 13471737 (Version 2)
Quarter: 2017Q4

REPORT INFORMATION
  Report Type: Spontaneous
  Country: US (occurrence: US)
  Receive Date: 20170424
  Receipt Date: 20171228
  Transmission Date: 20180320
  Serious: Yes (Life-Threatening, Hospitalization, Other)
  Sender: FDA-Public Use
  Company Number: US-SUN PHARMACEUTICAL INDUSTRIES LTD-2017US-137151

PATIENT
  Age: 74 Year
  Sex: Female

DRUGS (2)
  1. BACTRIM [Concomitant]
     Active Substance: SULFAMETHOXAZOLE\TRIMETHOPRIM
     Indication: DYSURIA
     Dosage: UNK
     Route: 065
  2. METFORMIN [Suspect]
     Active Substance: METFORMIN HYDROCHLORIDE
     Indication: TYPE 2 DIABETES MELLITUS
     Dosage: UNK
     Route: 065

REACTIONS (4)
  - Hypokinesia [Unknown]
  - Acute kidney injury [Recovering/Resolving]
  - Lactic acidosis [Unknown]
  - Ejection fraction decreased [Unknown]
